FAERS Safety Report 9788097 (Version 1)
Quarter: 2013Q4

REPORT INFORMATION
  Report Type: Spontaneous
  Country: US (occurrence: None)
  Receive Date: 20131227
  Receipt Date: 20131227
  Transmission Date: 20140711
  Serious: Yes (Hospitalization)
  Sender: FDA-Public Use
  Company Number: None

PATIENT
  Age: 74 Year
  Sex: Female
  Weight: 51 kg

DRUGS (18)
  1. WARFARIN [Suspect]
     Indication: ATRIAL FIBRILLATION
     Dosage: 2.5 MG MWF PO
     Route: 048
  2. WARFARIN [Suspect]
     Indication: ATRIAL FIBRILLATION
     Dosage: 5MG TTHSS PO
     Route: 048
  3. VIT B [Concomitant]
  4. COENZYME Q10 [Concomitant]
  5. PEPCID [Concomitant]
  6. DULCOLAX [Concomitant]
  7. FISH OIL [Concomitant]
  8. NORCO [Concomitant]
  9. MAGOX [Concomitant]
  10. MOM [Concomitant]
  11. MIRALAX [Concomitant]
  12. ONDANSETRON [Concomitant]
  13. PROCHLORPERAZINE [Concomitant]
  14. PROZAC [Concomitant]
  15. RITALIN [Concomitant]
  16. TRAMADOL [Concomitant]
  17. VIT D3 [Concomitant]
  18. VIT E [Concomitant]

REACTIONS (1)
  - International normalised ratio increased [None]
